FAERS Safety Report 21132579 (Version 3)
Quarter: 2022Q3

REPORT INFORMATION
  Report Type: Report from Study
  Country: EG (occurrence: EG)
  Receive Date: 20220726
  Receipt Date: 20220901
  Transmission Date: 20221027
  Serious: Yes (Other)
  Sender: FDA-Public Use
  Company Number: EG-NOVARTISPH-NVSC2022EG167952

PATIENT
  Age: 16 Year
  Sex: Female

DRUGS (5)
  1. GILENYA [Suspect]
     Active Substance: FINGOLIMOD HYDROCHLORIDE
     Indication: Multiple sclerosis
     Dosage: 0.5 MG, QD
     Route: 048
     Dates: start: 20220412
  2. VITAMIN D [Concomitant]
     Active Substance: VITAMIN D NOS
     Indication: Vitamin supplementation
     Dosage: 1 DOSAGE FORM, QD
     Route: 065
     Dates: start: 202202
  3. OMEGA 3 [Concomitant]
     Active Substance: CAPSAICIN
     Indication: Vitamin supplementation
     Dosage: 1 DOSAGE FORM, TID
     Route: 065
     Dates: start: 202202
  4. GAPTIN [Concomitant]
     Indication: Neck pain
     Dosage: 1 DOSAGE FORM, PRN
     Route: 065
     Dates: start: 202204
  5. GAPTIN [Concomitant]
     Indication: Back pain

REACTIONS (9)
  - Hypothyroidism [Not Recovered/Not Resolved]
  - Acne [Not Recovered/Not Resolved]
  - Weight increased [Not Recovered/Not Resolved]
  - Alopecia [Not Recovered/Not Resolved]
  - Cyanosis [Recovering/Resolving]
  - Diplopia [Recovering/Resolving]
  - Jaundice [Recovered/Resolved]
  - Hepatic enzyme increased [Unknown]
  - Dizziness [Recovered/Resolved]

NARRATIVE: CASE EVENT DATE: 20220401
